FAERS Safety Report 10028699 (Version 3)
Quarter: 2014Q2

REPORT INFORMATION
  Report Type: Spontaneous
  Country: US (occurrence: US)
  Receive Date: 20140321
  Receipt Date: 20140402
  Transmission Date: 20141212
  Serious: Yes (Other)
  Sender: FDA-Public Use
  Company Number: US-PFIZER INC-2014063528

PATIENT
  Age: 8 Month
  Sex: Male

DRUGS (1)
  1. SULFAMETHOXAZOLE/TRIMETHOPRIM [Suspect]
     Indication: PYREXIA
     Dosage: UNK
     Route: 065

REACTIONS (16)
  - Rash erythematous [Unknown]
  - Rash papular [Unknown]
  - Pyrexia [Recovered/Resolved]
  - Vomiting [Unknown]
  - Diarrhoea [Unknown]
  - Respiratory disorder [Unknown]
  - Swelling face [Unknown]
  - Hypophagia [Unknown]
  - Rhinorrhoea [Unknown]
  - Oedema peripheral [Unknown]
  - Red blood cell sedimentation rate increased [Unknown]
  - C-reactive protein increased [Unknown]
  - Acute haemorrhagic oedema of infancy [Unknown]
  - Condition aggravated [Unknown]
  - Skin plaque [Unknown]
  - Skin lesion [Unknown]
